FAERS Safety Report 21849957 (Version 1)
Quarter: 2023Q1

REPORT INFORMATION
  Report Type: Spontaneous
  Country: DZ (occurrence: DZ)
  Receive Date: 20230111
  Receipt Date: 20230111
  Transmission Date: 20230417
  Serious: Yes (Hospitalization)
  Sender: FDA-Public Use
  Company Number: DZ-MYLANLABS-2022M1141520

PATIENT
  Age: 25 Year
  Sex: Female

DRUGS (2)
  1. METHOTREXATE [Suspect]
     Active Substance: METHOTREXATE
     Indication: Acute lymphocytic leukaemia
     Dosage: UNK; HIGH-DOSE (1.315 G) OVER 43 HOURS, INFUSION
     Route: 042
  2. LEUCOVORIN [Concomitant]
     Active Substance: LEUCOVORIN
     Indication: Acute lymphocytic leukaemia
     Dosage: UNK
     Route: 065

REACTIONS (5)
  - Aplasia [Unknown]
  - Spinal cord disorder [Unknown]
  - Renal failure [Recovering/Resolving]
  - Liver injury [Recovering/Resolving]
  - Mouth ulceration [Not Recovered/Not Resolved]
